FAERS Safety Report 7744401 (Version 3)
Quarter: 2013Q4

REPORT INFORMATION
  Report Type: Spontaneous
  Country: US (occurrence: US)
  Receive Date: 20101230
  Receipt Date: 20131204
  Transmission Date: 20140711
  Serious: Yes (Hospitalization, Other)
  Sender: FDA-Public Use
  Company Number: US-ASTRAZENECA-2010SE52440

PATIENT
  Age: 76 Year
  Sex: Female
  Weight: 83.9 kg

DRUGS (28)
  1. ATACAND [Suspect]
     Indication: HYPERTENSION
     Route: 048
  2. ATACAND [Suspect]
     Indication: CORONARY ARTERY STENOSIS
     Route: 048
  3. ATACAND [Suspect]
     Indication: CARDIAC FAILURE
     Route: 048
  4. ATACAND [Suspect]
     Indication: HYPERTENSION
     Route: 048
     Dates: start: 201010
  5. ATACAND [Suspect]
     Indication: CORONARY ARTERY STENOSIS
     Route: 048
     Dates: start: 201010
  6. ATACAND [Suspect]
     Indication: CARDIAC FAILURE
     Route: 048
     Dates: start: 201010
  7. ATACAND [Suspect]
     Indication: HYPERTENSION
     Route: 048
  8. ATACAND [Suspect]
     Indication: CORONARY ARTERY STENOSIS
     Route: 048
  9. ATACAND [Suspect]
     Indication: CARDIAC FAILURE
     Route: 048
  10. ATACAND [Suspect]
     Indication: HYPERTENSION
     Route: 048
     Dates: start: 2006, end: 2013
  11. ATACAND [Suspect]
     Indication: CORONARY ARTERY STENOSIS
     Route: 048
     Dates: start: 2006, end: 2013
  12. ATACAND [Suspect]
     Indication: CARDIAC FAILURE
     Route: 048
     Dates: start: 2006, end: 2013
  13. ATACAND [Suspect]
     Indication: HYPERTENSION
     Route: 048
     Dates: start: 2013, end: 2013
  14. ATACAND [Suspect]
     Indication: CORONARY ARTERY STENOSIS
     Route: 048
     Dates: start: 2013, end: 2013
  15. ATACAND [Suspect]
     Indication: CARDIAC FAILURE
     Route: 048
     Dates: start: 2013, end: 2013
  16. ATACAND [Suspect]
     Indication: HYPERTENSION
     Route: 048
  17. ATACAND [Suspect]
     Indication: CORONARY ARTERY STENOSIS
     Route: 048
  18. ATACAND [Suspect]
     Indication: CARDIAC FAILURE
     Route: 048
  19. LISINOPRIL [Suspect]
     Indication: CORONARY ARTERY DISEASE
     Route: 048
     Dates: start: 2006, end: 2006
  20. LISINOPRIL [Suspect]
     Indication: CARDIAC FAILURE
     Route: 048
     Dates: start: 2006, end: 2006
  21. PRILOSEC OTC [Suspect]
     Indication: EPIGASTRIC DISCOMFORT
     Dosage: PRN
     Route: 048
  22. ATENOLOL (TEVA) [Suspect]
     Indication: BLOOD PRESSURE ABNORMAL
     Route: 065
  23. TENORMIN [Concomitant]
     Indication: BLOOD PRESSURE ABNORMAL
     Route: 048
  24. PRILOSEC [Concomitant]
     Route: 048
  25. VITAMIN D [Concomitant]
     Dosage: 1000 UNITS ONE TABLET BY MOUTH EVERY OTHER DAY.
     Route: 048
  26. OMEGA 3 [Concomitant]
     Route: 048
  27. B COMPLEX [Concomitant]
  28. VITAMINS [Concomitant]

REACTIONS (14)
  - Salivary gland calculus [Recovered/Resolved]
  - Clostridium difficile colitis [Recovered/Resolved]
  - Coronary artery stenosis [Unknown]
  - Candida infection [Unknown]
  - Dysgeusia [Unknown]
  - Hypoaesthesia oral [Unknown]
  - Erythema [Unknown]
  - Pruritus [Unknown]
  - Cough [Recovered/Resolved]
  - Dry throat [Unknown]
  - Malaise [Unknown]
  - Abdominal pain upper [Unknown]
  - Intentional drug misuse [Unknown]
  - Off label use [Unknown]
